FAERS Safety Report 6523202-7 (Version None)
Quarter: 2009Q4

REPORT INFORMATION
  Report Type: 
  Country: None (occurrence: None)
  Receive Date: 20091231
  Receipt Date: 20091221
  Transmission Date: 20100525
  Serious: Yes (Other)
  Sender: FDA-Public Use
  Company Number: DE-RANBAXY-2009RR-30166

PATIENT
  Age: 85 Year
  Sex: Female
  Weight: 64 kg

DRUGS (2)
  1. IBUPROFEN [Suspect]
     Indication: PROCEDURAL PAIN
     Dosage: 1200 MG, QD
     Route: 048
     Dates: start: 20091020, end: 20091030
  2. NOVALGIN [Concomitant]
     Indication: PROCEDURAL PAIN
     Dosage: 200 MG, QD
     Route: 048
     Dates: start: 20091023, end: 20091103

REACTIONS (1)
  - PANCYTOPENIA [None]
